FAERS Safety Report 24675476 (Version 1)
Quarter: 2024Q4

REPORT INFORMATION
  Report Type: Report from Study
  Country: US (occurrence: US)
  Receive Date: 20241128
  Receipt Date: 20241128
  Transmission Date: 20250115
  Serious: Yes (Hospitalization)
  Sender: PFIZER
  Company Number: US-PFIZER INC-PV202400147469

PATIENT
  Age: 29 Year
  Sex: Male
  Weight: 90.703 kg

DRUGS (5)
  1. VOXELOTOR [Suspect]
     Active Substance: VOXELOTOR
     Indication: Sickle cell disease
     Dosage: 500 MG, 3X/DAY (TOTAL INTAKE OF 1500MG PER DAY)
     Route: 048
     Dates: start: 20220413, end: 202407
  2. ZYRTEC [Concomitant]
     Active Substance: CETIRIZINE HYDROCHLORIDE
     Indication: Allergy prophylaxis
     Dosage: 10 MG
     Dates: start: 20160404
  3. HYDREA [Concomitant]
     Active Substance: HYDROXYUREA
     Indication: Sickle cell disease
     Dosage: 2000 MG, DAILY
     Route: 048
     Dates: start: 20160212
  4. ROXICODONE [Concomitant]
     Active Substance: OXYCODONE HYDROCHLORIDE
     Indication: Osteonecrosis
     Dosage: 30 MG, EVERY 4 HRS PRN, IMMEDIATE RELEASE
     Route: 048
     Dates: start: 20160212
  5. FOLVITE [Concomitant]
     Active Substance: FOLIC ACID
     Indication: Folate deficiency
     Dosage: 1 MG, DAILY
     Route: 048
     Dates: start: 20160212

REACTIONS (4)
  - Sickle cell anaemia with crisis [Recovered/Resolved]
  - Hyperbilirubinaemia [Recovered/Resolved]
  - Leukocytosis [Recovered/Resolved]
  - Normocytic anaemia [Recovered/Resolved]

NARRATIVE: CASE EVENT DATE: 20240825
